FAERS Safety Report 14190977 (Version 1)
Quarter: 2017Q4

REPORT INFORMATION
  Report Type: Spontaneous
  Country: US (occurrence: None)
  Receive Date: 20171114
  Receipt Date: 20171114
  Transmission Date: 20180321
  Serious: No
  Sender: FDA-Public Use
  Company Number: None

PATIENT
  Age: 51 Year
  Sex: Female

DRUGS (1)
  1. ENTYVIO [Suspect]
     Active Substance: VEDOLIZUMAB
     Indication: CROHN^S DISEASE
     Dosage: 300 MG EVERY 6 WKS INTRAVENOUSLY
     Route: 042
     Dates: start: 20171102

REACTIONS (6)
  - Drug dose omission [None]
  - Malaise [None]
  - Infectious mononucleosis [None]
  - Large granular lymphocytosis [None]
  - Lower respiratory tract infection [None]
  - Blood test abnormal [None]

NARRATIVE: CASE EVENT DATE: 20171106
